FAERS Safety Report 6555230-X (Version None)
Quarter: 2010Q1

REPORT INFORMATION
  Report Type: 
  Country: None (occurrence: None)
  Receive Date: 20100126
  Receipt Date: 20091215
  Transmission Date: 20100710
  Serious: Yes (Life-Threatening, Hospitalization)
  Sender: FDA-Public Use
  Company Number: FR-000307

PATIENT
  Age: 27 Year
  Sex: Female

DRUGS (1)
  1. LUTRELEF /00486502/(GONADORELIN ACETATE) POWDER AND SOLVENT FOR SOLUTI [Suspect]
     Indication: AMENORRHOEA
     Dosage: SUBCUTANEOUS
     Route: 058
     Dates: start: 20090101, end: 20090522

REACTIONS (5)
  - ANAPHYLACTIC SHOCK [None]
  - DERMATITIS CONTACT [None]
  - DRUG EXPOSURE DURING PREGNANCY [None]
  - DRUG INTOLERANCE [None]
  - INJECTION SITE REACTION [None]
